FAERS Safety Report 16254663 (Version 1)
Quarter: 2019Q2

REPORT INFORMATION
  Report Type: Spontaneous
  Country: FR (occurrence: FR)
  Receive Date: 20190430
  Receipt Date: 20190430
  Transmission Date: 20190711
  Serious: Yes (Hospitalization, Other)
  Sender: FDA-Public Use
  Company Number: FR-AUROBINDO-AUR-APL-2019-024463

PATIENT

DRUGS (8)
  1. IBUPROFEN. [Suspect]
     Active Substance: IBUPROFEN
     Indication: POISONING DELIBERATE
     Dosage: 12 GRAM
     Route: 048
     Dates: start: 20181105, end: 20181105
  2. METOPIMAZINE [Suspect]
     Active Substance: METOPIMAZINE
     Indication: POISONING DELIBERATE
     Dosage: 20 DOSAGE FORM
     Route: 048
     Dates: start: 20181105, end: 20181105
  3. IZALGI [Suspect]
     Active Substance: ACETAMINOPHEN\OPIUM
     Indication: POISONING DELIBERATE
     Dosage: 72 DOSAGE FORM
     Route: 048
     Dates: start: 20181105, end: 20181105
  4. ESOMEPRAZOLE. [Suspect]
     Active Substance: ESOMEPRAZOLE MAGNESIUM
     Indication: POISONING DELIBERATE
     Dosage: 240 MILLIGRAM
     Route: 048
     Dates: start: 20181105, end: 20181105
  5. PARACETAMOL [Suspect]
     Active Substance: ACETAMINOPHEN
     Indication: POISONING DELIBERATE
     Dosage: 43 GRAM
     Route: 048
     Dates: start: 20181105, end: 20181105
  6. RACECADOTRIL [Suspect]
     Active Substance: RACECADOTRIL
     Indication: POISONING DELIBERATE
     Dosage: 10 DOSAGE FORM
     Route: 048
     Dates: start: 20181105, end: 20181105
  7. THIOCOLCHICOSIDE [Suspect]
     Active Substance: THIOCOLCHICOSIDE
     Indication: POISONING DELIBERATE
     Dosage: 48 MILLIGRAM
     Route: 048
     Dates: start: 20181105, end: 20181105
  8. ETIFOXINE HYDROCHLORIDE [Suspect]
     Active Substance: ETIFOXINE HYDROCHLORIDE
     Indication: POISONING DELIBERATE
     Dosage: 60 DOSAGE FORM
     Route: 048
     Dates: start: 20181105, end: 20181105

REACTIONS (1)
  - Acute hepatic failure [Recovering/Resolving]

NARRATIVE: CASE EVENT DATE: 20181106
